FAERS Safety Report 5146703-5 (Version None)
Quarter: 2006Q4

REPORT INFORMATION
  Report Type: 
  Country: None (occurrence: None)
  Receive Date: 20061109
  Receipt Date: 20061005
  Transmission Date: 20070319
  Serious: Yes (Hospitalization)
  Sender: FDA-Public Use
  Company Number: JP-ROCHE-466734

PATIENT
  Age: 7 Year
  Sex: Female

DRUGS (9)
  1. ROCEPHIN [Suspect]
     Indication: PNEUMONIA MYCOPLASMAL
     Route: 042
     Dates: start: 20060911, end: 20060915
  2. PENTICILLIN [Suspect]
     Indication: PNEUMONIA MYCOPLASMAL
     Route: 042
     Dates: start: 20060908, end: 20060911
  3. KLARICID [Suspect]
     Indication: PNEUMONIA MYCOPLASMAL
     Route: 048
     Dates: start: 20060908, end: 20060911
  4. MINOCYCLINE HCL [Suspect]
     Indication: PNEUMONIA MYCOPLASMAL
     Route: 048
     Dates: start: 20060911, end: 20060915
  5. ASVERIN [Concomitant]
     Route: 048
     Dates: start: 20060908, end: 20060915
  6. PERIACTIN [Concomitant]
     Route: 048
     Dates: start: 20060908, end: 20060915
  7. MUCODYNE [Concomitant]
     Route: 048
     Dates: start: 20060908, end: 20060915
  8. LAC-B [Concomitant]
     Route: 048
     Dates: start: 20060915, end: 20060918
  9. ALPINY [Concomitant]
     Dosage: ADMINISTERED WHEN NEEDED
     Route: 054
     Dates: start: 20060908, end: 20060915

REACTIONS (4)
  - HEPATIC FUNCTION ABNORMAL [None]
  - PLATELET COUNT DECREASED [None]
  - PYREXIA [None]
  - WHITE BLOOD CELL COUNT DECREASED [None]
